FAERS Safety Report 14313226 (Version 5)
Quarter: 2018Q3

REPORT INFORMATION
  Report Type: Spontaneous
  Country: DE (occurrence: DE)
  Receive Date: 20171221
  Receipt Date: 20180713
  Transmission Date: 20181010
  Serious: Yes (Hospitalization, Other)
  Sender: FDA-Public Use
  Company Number: DE-DRREDDYS-GER/GER/17/0095242

PATIENT
  Age: 35 Year
  Sex: Female

DRUGS (2)
  1. CIPROFLOXACIN. [Suspect]
     Active Substance: CIPROFLOXACIN
     Indication: CYSTITIS
     Dosage: UNK
     Dates: start: 2016
  2. CIPROFLOXACIN. [Suspect]
     Active Substance: CIPROFLOXACIN
     Indication: SINUSITIS
     Dosage: UNK

REACTIONS (10)
  - Circulatory collapse [Not Recovered/Not Resolved]
  - Dizziness [Not Recovered/Not Resolved]
  - Fatigue [Not Recovered/Not Resolved]
  - Gastrointestinal injury [Not Recovered/Not Resolved]
  - Anxiety [Unknown]
  - Muscle atrophy [Unknown]
  - Feeding disorder [Not Recovered/Not Resolved]
  - Pain [Not Recovered/Not Resolved]
  - Nerve injury [Not Recovered/Not Resolved]
  - Fluid intake reduced [Not Recovered/Not Resolved]
